FAERS Safety Report 7254435-2 (Version None)
Quarter: 2011Q1

REPORT INFORMATION
  Report Type: 
  Country: None (occurrence: None)
  Receive Date: 20110129
  Receipt Date: 20100420
  Transmission Date: 20110831
  Serious: No
  Sender: FDA-Public Use
  Company Number: US-ABBOTT-10P-163-0640556-00

PATIENT
  Sex: Female
  Weight: 71.278 kg

DRUGS (7)
  1. HUMIRA [Suspect]
     Indication: RHEUMATOID ARTHRITIS
     Route: 058
  2. LORTAB [Concomitant]
     Indication: PRODUCT USED FOR UNKNOWN INDICATION
  3. RECLAST [Concomitant]
     Indication: PRODUCT USED FOR UNKNOWN INDICATION
  4. MS CONTIN [Concomitant]
     Indication: PAIN
  5. METHOTREXATE [Concomitant]
     Indication: RHEUMATOID ARTHRITIS
  6. RELAFEN [Concomitant]
     Indication: ANTIINFLAMMATORY THERAPY
  7. ZANAFLEX [Concomitant]
     Indication: MUSCLE SPASMS

REACTIONS (1)
  - STRESS FRACTURE [None]
